FAERS Safety Report 18503077 (Version 1)
Quarter: 2020Q4

REPORT INFORMATION
  Report Type: Report from Study
  Country: TW (occurrence: TW)
  Receive Date: 20201113
  Receipt Date: 20201113
  Transmission Date: 20210114
  Serious: Yes (Other)
  Sender: FDA-Public Use
  Company Number: NVSC2020TW300179

PATIENT
  Age: 81 Year
  Sex: Male

DRUGS (1)
  1. ENTRESTO [Suspect]
     Active Substance: SACUBITRIL\VALSARTAN
     Indication: CARDIAC FAILURE
     Dosage: UNK UNK, PRN
     Route: 065

REACTIONS (13)
  - Renal failure [Unknown]
  - Dyspnoea [Unknown]
  - Discomfort [Unknown]
  - Diabetes mellitus [Unknown]
  - Anxiety [Unknown]
  - Pain [Unknown]
  - Depressed mood [Unknown]
  - Fatigue [Unknown]
  - Oedema peripheral [Unknown]
  - Off label use [Unknown]
  - Hypokinesia [Unknown]
  - Depression [Unknown]
  - Cardiovascular disorder [Unknown]
